FAERS Safety Report 21197007 (Version 2)
Quarter: 2022Q3

REPORT INFORMATION
  Report Type: Spontaneous
  Country: UM (occurrence: UM)
  Receive Date: 20220810
  Receipt Date: 20220822
  Transmission Date: 20221027
  Serious: Yes (Life-Threatening, Other)
  Sender: FDA-Public Use
  Company Number: UM-PFIZER INC-PV202200033423

PATIENT
  Sex: Female

DRUGS (2)
  1. GEODON [Suspect]
     Active Substance: ZIPRASIDONE HYDROCHLORIDE\ZIPRASIDONE MESYLATE
     Dosage: DOSE WAS TOO HIGH
     Dates: start: 201011
  2. GEODON [Suspect]
     Active Substance: ZIPRASIDONE HYDROCHLORIDE\ZIPRASIDONE MESYLATE
     Dosage: 80 MG, 2X/DAY

REACTIONS (36)
  - Off label use [Unknown]
  - Product use issue [Unknown]
  - Overdose [Unknown]
  - Heart rate decreased [Unknown]
  - Electrocardiogram QT prolonged [Unknown]
  - Peripheral vascular disorder [Unknown]
  - Apnoea [Unknown]
  - Craniocerebral injury [Unknown]
  - Brain injury [Unknown]
  - Hallucinations, mixed [Unknown]
  - Seizure [Unknown]
  - Haemorrhage [Unknown]
  - Autism spectrum disorder [Unknown]
  - Loss of consciousness [Unknown]
  - Cyanosis [Unknown]
  - Mental impairment [Unknown]
  - Dementia [Unknown]
  - Abdominal pain upper [Unknown]
  - Body temperature abnormal [Unknown]
  - Amenorrhoea [Unknown]
  - Terminal insomnia [Unknown]
  - Headache [Unknown]
  - Blood oestrogen decreased [Unknown]
  - Hormone level abnormal [Unknown]
  - Breast discharge [Unknown]
  - Muscle spasms [Unknown]
  - Emotional disorder [Unknown]
  - Anal incontinence [Unknown]
  - Urinary incontinence [Unknown]
  - Mutism [Unknown]
  - Confusional state [Unknown]
  - Somatic symptom disorder of pregnancy [Unknown]
  - Pain [Unknown]
  - Dyskinesia [Unknown]
  - Cognitive disorder [Unknown]
  - Nerve injury [Unknown]
